FAERS Safety Report 22060849 (Version 2)
Quarter: 2023Q2

REPORT INFORMATION
  Report Type: Spontaneous
  Country: US (occurrence: US)
  Receive Date: 20230303
  Receipt Date: 20230412
  Transmission Date: 20230721
  Serious: Yes (Death, Hospitalization, Other)
  Sender: FDA-Public Use
  Company Number: US-009507513-2005USA000825

PATIENT
  Age: 84 Year
  Sex: Male
  Weight: 89.342 kg

DRUGS (24)
  1. KEYTRUDA [Suspect]
     Active Substance: PEMBROLIZUMAB
     Indication: Prostate cancer
     Dosage: 200 MILLIGRAM, EVERY 3 WEEKS
     Route: 042
     Dates: start: 20200312
  2. KEYTRUDA [Suspect]
     Active Substance: PEMBROLIZUMAB
     Dosage: 200 MILLIGRAM, EVERY 3 WEEKS
     Route: 042
     Dates: start: 20200402
  3. KEYTRUDA [Suspect]
     Active Substance: PEMBROLIZUMAB
     Dosage: 200 MILLIGRAM, EVERY 3 WEEKS
     Route: 042
     Dates: start: 20200422
  4. COLCHICINE [Suspect]
     Active Substance: COLCHICINE
     Dosage: 0.6 MILLIGRAM, BID
     Dates: start: 20200424
  5. METOPROLOL [Concomitant]
     Active Substance: METOPROLOL
     Dosage: 4 MILLIGRAM, EVERY 4 HOURS
  6. ATORVASTATIN [Concomitant]
     Active Substance: ATORVASTATIN
     Dosage: 40 MILLIGRAM, QD
  7. FUROSEMIDE [Concomitant]
     Active Substance: FUROSEMIDE
     Dosage: 10 MILLIGRAM DALIY, THEN INCREASED TO 20 MG, THEN 40 MILLIGRAM DAILY
  8. CHOLECALCIFEROL [Concomitant]
     Active Substance: CHOLECALCIFEROL
     Dosage: 2000 UNITS, DAILY
  9. CYANOCOBALAMIN [Concomitant]
     Active Substance: CYANOCOBALAMIN
     Dosage: UNK
     Dates: start: 20200306
  10. ASPIRIN [Concomitant]
     Active Substance: ASPIRIN
     Dosage: 81 MILLIGRAM, DAILY
     Dates: start: 1998
  11. CALCIUM [Concomitant]
     Active Substance: CALCIUM
     Dosage: UNK
     Dates: start: 2015
  12. PSYLLIUM HUSK [Concomitant]
     Active Substance: PSYLLIUM HUSK
     Dosage: UNK
     Dates: start: 2019
  13. ZITHROMAX [Concomitant]
     Active Substance: AZITHROMYCIN DIHYDRATE
     Dosage: 500 MILLIGRAM, TWICE A DAY FOR 1 DAY AND THEN 500 MG ONCE A DAY FOR 4 DAYS
  14. MINERALS\VITAMINS [Concomitant]
     Active Substance: MINERALS\VITAMINS
  15. PREDNISONE [Concomitant]
     Active Substance: PREDNISONE
     Dosage: 80 MILLIGRAM FOR 1 WEEK, THEN 60 MG FOR 1 WEEK, THEN 40 MG FOR 1 WEEK, THEN 20 MG FOR 1 WEEK, THEN 1
  16. LOVENOX [Concomitant]
     Active Substance: ENOXAPARIN SODIUM
     Dosage: 40 MILLIGRAM/D
  17. BISACODYL [Concomitant]
     Active Substance: BISACODYL
     Dosage: 10 MILLIGRAM, EVERY 24 HOURS
  18. ONDANSETRON [Concomitant]
     Active Substance: ONDANSETRON
     Dosage: 4 MILLIGRAM, EVERY 6 HOURS
  19. ALBUMIN HUMAN [Concomitant]
     Active Substance: ALBUMIN HUMAN
     Dosage: 25 GRAM, TWICE DAILY
  20. MORPHINE [Concomitant]
     Active Substance: MORPHINE
     Dosage: 2 MILLIGRAM, EVERY 15 MINUTES
     Route: 042
  21. POTASSIUM CHLORIDE [Concomitant]
     Active Substance: POTASSIUM CHLORIDE
     Dosage: 0.16 MMOL/KG, ONCE ROUTE: IVPB
     Route: 042
  22. PANTOPRAZOLE [Concomitant]
     Active Substance: PANTOPRAZOLE
  23. XGEVA [Concomitant]
     Active Substance: DENOSUMAB
  24. LUPRON [Concomitant]
     Active Substance: LEUPROLIDE ACETATE

REACTIONS (25)
  - Malignant neoplasm progression [Fatal]
  - Cardiac arrest [Fatal]
  - Tricuspid valve incompetence [Unknown]
  - Atrial fibrillation [Unknown]
  - Electrocardiogram ST segment depression [Unknown]
  - Acute respiratory failure [Unknown]
  - Metastases to bone [Unknown]
  - Cardiac failure congestive [Unknown]
  - Pericardial effusion [Unknown]
  - Fatigue [Unknown]
  - Pneumonitis [Recovered/Resolved]
  - Dyspnoea [Recovering/Resolving]
  - Right atrial enlargement [Unknown]
  - Supraventricular extrasystoles [Unknown]
  - Pleural effusion [Unknown]
  - Inferior vena cava dilatation [Unknown]
  - Atrial pressure increased [Unknown]
  - Electrocardiogram QRS complex abnormal [Unknown]
  - QRS axis abnormal [Unknown]
  - Normocytic anaemia [Not Recovered/Not Resolved]
  - Asthenia [Not Recovered/Not Resolved]
  - Nausea [Unknown]
  - Diarrhoea [Unknown]
  - Anaemia [Unknown]
  - Product use in unapproved indication [Unknown]

NARRATIVE: CASE EVENT DATE: 20200101
